FAERS Safety Report 9685441 (Version 1)
Quarter: 2013Q4

REPORT INFORMATION
  Report Type: Spontaneous
  Country: US (occurrence: None)
  Receive Date: 20131112
  Receipt Date: 20131112
  Transmission Date: 20140711
  Serious: Yes (Disabling, Other)
  Sender: FDA-Public Use
  Company Number: None

PATIENT
  Age: 44 Year
  Sex: Female
  Weight: 49.9 kg

DRUGS (1)
  1. LYSTEDA [Suspect]
     Indication: MENORRHAGIA
     Dosage: 2 PILLS, THREE TIMES DAILY, TAKEN BY MOUTH
     Route: 048
     Dates: start: 20131102, end: 20131105

REACTIONS (6)
  - Myalgia [None]
  - Vision blurred [None]
  - Diarrhoea [None]
  - Dizziness [None]
  - Dizziness [None]
  - Arthralgia [None]
